FAERS Safety Report 7743538-1 (Version None)
Quarter: 2011Q3

REPORT INFORMATION
  Report Type: 
  Country: None (occurrence: None)
  Receive Date: 20110912
  Receipt Date: 20110902
  Transmission Date: 20111222
  Serious: Yes (Life-Threatening, Hospitalization, Other)
  Sender: FDA-Public Use
  Company Number: JP-ROCHE-779564

PATIENT
  Sex: Female
  Weight: 50 kg

DRUGS (14)
  1. CARVEDILOL [Concomitant]
     Route: 048
  2. ACTEMRA [Suspect]
     Route: 041
     Dates: start: 20100420, end: 20110315
  3. ALENDRONATE SODIUM [Concomitant]
     Route: 048
  4. CELECOXIB [Concomitant]
     Route: 048
  5. FOLIC ACID [Concomitant]
     Route: 048
  6. PRORENAL [Concomitant]
     Route: 048
  7. VERAPAMIL HYDROCHLORIDE [Concomitant]
     Route: 048
  8. GLYBURIDE [Concomitant]
     Route: 048
  9. RIMATIL [Concomitant]
     Route: 048
  10. PREDNISOLONE [Concomitant]
     Route: 048
  11. ACTEMRA [Suspect]
     Indication: RHEUMATOID ARTHRITIS
     Route: 041
     Dates: start: 20100323, end: 20100323
  12. RHEUMATREX [Concomitant]
     Route: 048
  13. FAMOTIDINE [Concomitant]
     Route: 048
  14. WARFARIN SODIUM [Concomitant]
     Route: 048

REACTIONS (5)
  - SEPTIC SHOCK [None]
  - CELLULITIS [None]
  - SKIN ULCER [None]
  - PURPURA [None]
  - BLOOD BLISTER [None]
